FAERS Safety Report 24862467 (Version 1)
Quarter: 2025Q1

REPORT INFORMATION
  Report Type: Spontaneous
  Country: CA (occurrence: CA)
  Receive Date: 20250120
  Receipt Date: 20250120
  Transmission Date: 20250408
  Serious: Yes (Life-Threatening, Hospitalization, Other)
  Sender: PFIZER
  Company Number: CA-PFIZER INC-202500010795

PATIENT
  Age: 8 Month
  Sex: Male
  Weight: 9 kg

DRUGS (7)
  1. CYTARABINE [Suspect]
     Active Substance: CYTARABINE
     Indication: Chemotherapy
     Dosage: 304 MG, 2X/DAY
     Route: 042
  2. MITOXANTRONE [Suspect]
     Active Substance: MITOXANTRONE HYDROCHLORIDE
     Indication: Chemotherapy
     Dosage: 3.7 MG, 1X/DAY
     Route: 042
  3. METOCLOPRAMIDE [Concomitant]
     Active Substance: METOCLOPRAMIDE
  4. MYCAMINE [Concomitant]
     Active Substance: MICAFUNGIN SODIUM
  5. ONDANSETRON [Concomitant]
     Active Substance: ONDANSETRON
  6. PREDNISOLONE [Concomitant]
     Active Substance: PREDNISOLONE
  7. ZINECARD [Concomitant]
     Active Substance: DEXRAZOXANE HYDROCHLORIDE
     Route: 042

REACTIONS (3)
  - Aplastic anaemia [Recovered/Resolved]
  - Hepatic cytolysis [Recovered/Resolved]
  - Fever neonatal [Recovered/Resolved]
